FAERS Safety Report 11830236 (Version 3)
Quarter: 2015Q4

REPORT INFORMATION
  Report Type: Spontaneous
  Country: US (occurrence: US)
  Receive Date: 20151214
  Receipt Date: 20151214
  Transmission Date: 20160305
  Serious: Yes (Other)
  Sender: FDA-Public Use
  Company Number: US-JNJFOC-20151107678

PATIENT
  Age: 44 Year
  Sex: Female
  Weight: 68.04 kg

DRUGS (1)
  1. LEVAQUIN [Suspect]
     Active Substance: LEVOFLOXACIN
     Indication: SINUSITIS
     Route: 048
     Dates: start: 20090909, end: 20090919

REACTIONS (6)
  - Psychotic disorder [Unknown]
  - Morbid thoughts [Unknown]
  - Depression [Unknown]
  - Movement disorder [Unknown]
  - Muscle rupture [Unknown]
  - Anxiety [Unknown]
